FAERS Safety Report 10040870 (Version 1)
Quarter: 2014Q1

REPORT INFORMATION
  Report Type: Spontaneous
  Country: US (occurrence: US)
  Receive Date: 20140327
  Receipt Date: 20140327
  Transmission Date: 20141002
  Serious: No
  Sender: FDA-Public Use
  Company Number: US-PFIZER INC-2014083439

PATIENT
  Age: 63 Year
  Sex: Female

DRUGS (1)
  1. HALCION [Suspect]
     Indication: SLEEP DISORDER
     Dosage: 2.75 MG, DAILY (11 TABLETS OF 0.25 MG (2.75 MG)
     Route: 048

REACTIONS (3)
  - Overdose [Unknown]
  - Product quality issue [Unknown]
  - Drug ineffective [Unknown]
